FAERS Safety Report 21285894 (Version 2)
Quarter: 2022Q3

REPORT INFORMATION
  Report Type: Spontaneous
  Country: US (occurrence: US)
  Receive Date: 20220902
  Receipt Date: 20220914
  Transmission Date: 20221026
  Serious: No
  Sender: FDA-Public Use
  Company Number: US-TEVA-2022-US-2068874

PATIENT
  Sex: Female

DRUGS (3)
  1. ESTRADIOL [Suspect]
     Active Substance: ESTRADIOL
     Indication: Product used for unknown indication
     Dosage: 1 MILLIGRAM
     Route: 065
     Dates: start: 2022, end: 202208
  2. PREMARIN [Suspect]
     Active Substance: ESTROGENS, CONJUGATED
     Indication: Product used for unknown indication
     Route: 067
     Dates: start: 1983
  3. PREMARIN [Suspect]
     Active Substance: ESTROGENS, CONJUGATED
     Route: 065
     Dates: start: 1983

REACTIONS (3)
  - Drug ineffective [Unknown]
  - Constipation [Unknown]
  - Migraine [Unknown]
